FAERS Safety Report 17200750 (Version 2)
Quarter: 2020Q1

REPORT INFORMATION
  Report Type: Spontaneous
  Country: NL (occurrence: NL)
  Receive Date: 20191226
  Receipt Date: 20200102
  Transmission Date: 20200409
  Serious: Yes (Other)
  Sender: FDA-Public Use
  Company Number: NL-MYLANLABS-2019M1126966

PATIENT
  Sex: Female
  Weight: 86 kg

DRUGS (8)
  1. TRAVOPROST. [Suspect]
     Active Substance: TRAVOPROST
     Indication: INTRAOCULAR PRESSURE TEST
     Dosage: IN THE EVENING
  2. HYLAN [Suspect]
     Active Substance: CARBOXYPOLYMETHYLENE\HYALURONATE SODIUM
     Indication: BLEPHARITIS
     Dosage: 3 TIMES A DAY
  3. BRINZOLAMIDE [Suspect]
     Active Substance: BRINZOLAMIDE
     Indication: PRODUCT USED FOR UNKNOWN INDICATION
     Dosage: 3 TIMES A DAY
  4. CLOPIDOGREL [Concomitant]
     Active Substance: CLOPIDOGREL BISULFATE
     Indication: TRANSIENT ISCHAEMIC ATTACK
     Dosage: UNK
  5. ALVESCO [Suspect]
     Active Substance: CICLESONIDE
     Indication: ASTHMA
     Dosage: 2 PUFFERS AFTER BREAKFAST AND 2 PUFFERS BEFORE GOING TO SLEEP
  6. EUTHYROX [Concomitant]
     Active Substance: LEVOTHYROXINE SODIUM
     Indication: THYROID DISORDER
     Dosage: UNK
  7. SALBUTAMOL [Suspect]
     Active Substance: ALBUTEROL
     Indication: ASTHMA
     Dosage: 500 MICROGRAM DAILY; 2 PUFFERS AFTER BREAKFAST, 2 PUFFERS BEFORE GOING TO SLEEP, ALSO TAKES A PUF
     Route: 065
  8. VALSARTAN. [Concomitant]
     Active Substance: VALSARTAN
     Indication: HYPERTENSION
     Dosage: UNK

REACTIONS (4)
  - Blepharitis [Unknown]
  - Cataract [Unknown]
  - Intraocular pressure increased [Unknown]
  - Tinnitus [Unknown]
